FAERS Safety Report 5272420-7 (Version None)
Quarter: 2007Q1

REPORT INFORMATION
  Report Type: 
  Country: None (occurrence: None)
  Receive Date: 20070320
  Receipt Date: 20070320
  Transmission Date: 20070707
  Serious: No
  Sender: FDA-Public Use
  Company Number: None

PATIENT
  Age: 18 Year
  Sex: Female

DRUGS (1)
  1. APLISOL [Suspect]
     Dosage: 0.1 ML  ID
     Route: 023
     Dates: start: 20070228

REACTIONS (7)
  - INJECTION SITE ERYTHEMA [None]
  - INJECTION SITE INDURATION [None]
  - INJECTION SITE PAIN [None]
  - INJECTION SITE SWELLING [None]
  - INJECTION SITE VESICLES [None]
  - INJECTION SITE WARMTH [None]
  - PHARMACEUTICAL PRODUCT COMPLAINT [None]
